FAERS Safety Report 15592375 (Version 1)
Quarter: 2018Q4

REPORT INFORMATION
  Report Type: Spontaneous
  Country: US (occurrence: US)
  Receive Date: 20181106
  Receipt Date: 20181106
  Transmission Date: 20190205
  Serious: No
  Sender: FDA-Public Use
  Company Number: US-MIST-TIR-2018-0729

PATIENT
  Age: 56 Year
  Sex: Female
  Weight: 57.66 kg

DRUGS (6)
  1. TERRY NATURALS HAIR RENEW [Concomitant]
     Indication: PRODUCT USED FOR UNKNOWN INDICATION
     Dates: end: 201806
  2. TIROSINT [Suspect]
     Active Substance: LEVOTHYROXINE SODIUM
     Dosage: ^MAYBE 3 HALF DOSES (125MCG CAPSULES) ONE WEEK AND MAYBE 2 HALF DOSES THE NEXT^
     Route: 048
     Dates: start: 2018
  3. VITAMIN C [Concomitant]
     Active Substance: ASCORBIC ACID
     Indication: PRODUCT USED FOR UNKNOWN INDICATION
  4. TIROSINT [Suspect]
     Active Substance: LEVOTHYROXINE SODIUM
     Dosage: 125MCG DAILY
     Route: 048
     Dates: start: 201712, end: 2018
  5. MULTIVITAMIN [Concomitant]
     Active Substance: VITAMINS
     Indication: PRODUCT USED FOR UNKNOWN INDICATION
  6. TIROSINT [Suspect]
     Active Substance: LEVOTHYROXINE SODIUM
     Indication: THYROIDECTOMY
     Dosage: 125MCG DAILY 5 DAYS A WEEK AND ONE HALF (1/2) OF A TIROSINT 125MCG CAPSULE FOR THE OTHER 2 DAYS
     Route: 048
     Dates: start: 2014, end: 201712

REACTIONS (16)
  - Wrong technique in product usage process [Unknown]
  - Tendon pain [Not Recovered/Not Resolved]
  - Influenza [Unknown]
  - Insomnia [Not Recovered/Not Resolved]
  - Palpitations [Not Recovered/Not Resolved]
  - Hyperthyroidism [Unknown]
  - Incorrect dose administered [Unknown]
  - Feeling abnormal [Unknown]
  - Myalgia [Not Recovered/Not Resolved]
  - Arthralgia [Not Recovered/Not Resolved]
  - Menopause [Unknown]
  - Tinnitus [Not Recovered/Not Resolved]
  - Paraesthesia [Not Recovered/Not Resolved]
  - Drug level above therapeutic [Unknown]
  - Weight decreased [Unknown]
  - Alopecia [Not Recovered/Not Resolved]

NARRATIVE: CASE EVENT DATE: 2014
